FAERS Safety Report 5187943-9 (Version None)
Quarter: 2006Q4

REPORT INFORMATION
  Report Type: 
  Country: None (occurrence: None)
  Receive Date: 20061221
  Receipt Date: 20061207
  Transmission Date: 20070319
  Serious: Yes (Hospitalization)
  Sender: FDA-Public Use
  Company Number: GBWYE775507DEC06

PATIENT
  Age: 78 Year
  Sex: Male
  Weight: 72 kg

DRUGS (9)
  1. ENBREL [Suspect]
     Indication: RHEUMATOID ARTHRITIS
     Route: 058
     Dates: start: 20030301
  2. HUMIRA [Suspect]
     Indication: RHEUMATOID ARTHRITIS
     Dosage: 40MG FREQUENCY UNSPECIFIED
     Route: 058
     Dates: start: 20051101, end: 20061101
  3. CALCICHEW-D3 [Concomitant]
     Dosage: UNKNOWN
     Route: 048
  4. DAPSONE [Concomitant]
     Route: 048
  5. RISEDRONATE SODIUM [Concomitant]
     Route: 048
  6. LANSOPRAZOLE [Concomitant]
     Route: 048
  7. METHOTREXATE [Concomitant]
     Indication: RHEUMATOID ARTHRITIS
     Route: 048
  8. ACETAMINOPHEN [Concomitant]
     Indication: PAIN
     Dosage: 1 DOSE EVERY 1 PRN
  9. FOLIC ACID [Concomitant]

REACTIONS (1)
  - BRAIN NEOPLASM [None]
